FAERS Safety Report 25009947 (Version 1)
Quarter: 2025Q1

REPORT INFORMATION
  Report Type: Spontaneous
  Country: DE (occurrence: DE)
  Receive Date: 20250225
  Receipt Date: 20250225
  Transmission Date: 20250409
  Serious: Yes (Other)
  Sender: COVIS PHARMA GMBH
  Company Number: None

PATIENT
  Age: 43 Year
  Sex: Male
  Weight: 74 kg

DRUGS (1)
  1. ALVESCO [Suspect]
     Active Substance: CICLESONIDE
     Indication: Asthma
     Dosage: 1 X TAGLICH
     Route: 055
     Dates: start: 20180101, end: 20250209

REACTIONS (2)
  - Cataract [Recovered/Resolved with Sequelae]
  - Visual impairment [Unknown]
